FAERS Safety Report 5337891-6 (Version None)
Quarter: 2007Q2

REPORT INFORMATION
  Report Type: 
  Country: None (occurrence: None)
  Receive Date: 20070327
  Receipt Date: 20070103
  Transmission Date: 20071010
  Serious: No
  Sender: FDA-Public Use
  Company Number: 235168

PATIENT
  Sex: Female

DRUGS (4)
  1. AVASTIN [Suspect]
     Indication: DRUG USE FOR UNKNOWN INDICATION
  2. TAXOL [Concomitant]
  3. CARBOPLATIN [Concomitant]
  4. NS FLUSH (SODIUM CHLORIDE) [Concomitant]

REACTIONS (1)
  - HYPERSENSITIVITY [None]
